FAERS Safety Report 17214084 (Version 1)
Quarter: 2019Q4

REPORT INFORMATION
  Report Type: Report from Study
  Country: GB (occurrence: GB)
  Receive Date: 20191230
  Receipt Date: 20191230
  Transmission Date: 20200122
  Serious: Yes (Other)
  Sender: FDA-Public Use
  Company Number: GB-AMGEN-GBRSL2019214689

PATIENT
  Age: 40 Year
  Sex: Female

DRUGS (1)
  1. AMGEVITA [Suspect]
     Active Substance: ADALIMUMAB
     Indication: COLITIS ULCERATIVE
     Dosage: 40 MILLIGRAM, Q2WK
     Route: 065

REACTIONS (8)
  - Eye disorder [Unknown]
  - Paranasal sinus haemorrhage [Unknown]
  - Sinusitis [Unknown]
  - Menstrual disorder [Unknown]
  - Vaginal infection [Unknown]
  - Haematochezia [Unknown]
  - Upper limb fracture [Unknown]
  - Skin disorder [Unknown]
